FAERS Safety Report 18131310 (Version 5)
Quarter: 2021Q1

REPORT INFORMATION
  Report Type: Spontaneous
  Country: US (occurrence: US)
  Receive Date: 20200810
  Receipt Date: 20210104
  Transmission Date: 20210419
  Serious: Yes (Death, Hospitalization)
  Sender: FDA-Public Use
  Company Number: US-PFIZER INC-2020300294

PATIENT
  Age: 90 Year
  Sex: Male
  Weight: 72.56 kg

DRUGS (1)
  1. VYNDAMAX [Suspect]
     Active Substance: TAFAMIDIS
     Indication: AMYLOIDOSIS
     Dosage: 61 MG, 1X/DAY

REACTIONS (7)
  - Abscess [Unknown]
  - Fluid retention [Unknown]
  - Product dose omission issue [Unknown]
  - Weight increased [Unknown]
  - Death [Fatal]
  - Off label use [Unknown]
  - Cellulitis [Recovered/Resolved]

NARRATIVE: CASE EVENT DATE: 20201130
